FAERS Safety Report 24644773 (Version 2)
Quarter: 2025Q1

REPORT INFORMATION
  Report Type: Spontaneous
  Country: PL (occurrence: PL)
  Receive Date: 20241121
  Receipt Date: 20250114
  Transmission Date: 20250409
  Serious: No
  Sender: ABBVIE
  Company Number: PL-ABBVIE-6008679

PATIENT
  Age: 57 Year
  Sex: Male

DRUGS (1)
  1. UPADACITINIB [Suspect]
     Active Substance: UPADACITINIB
     Indication: Rheumatoid arthritis
     Dosage: FORM STRENGTH: 15 MILLIGRAM
     Route: 048
     Dates: start: 20211001

REACTIONS (5)
  - Gout [Recovered/Resolved]
  - Peripheral swelling [Recovered/Resolved]
  - Blood uric acid increased [Recovered/Resolved]
  - Pain in extremity [Recovered/Resolved]
  - Erythema [Recovered/Resolved]

NARRATIVE: CASE EVENT DATE: 20240601
